FAERS Safety Report 7278942-1 (Version None)
Quarter: 2011Q1

REPORT INFORMATION
  Report Type: 
  Country: None (occurrence: None)
  Receive Date: 20110207
  Receipt Date: 20110125
  Transmission Date: 20110831
  Serious: Yes (Hospitalization, Other)
  Sender: FDA-Public Use
  Company Number: PHHY2011DE08133

PATIENT
  Sex: Female

DRUGS (9)
  1. SIMVASTATIN [Concomitant]
     Dosage: 20 MG,
     Route: 048
  2. FEMARA [Suspect]
     Indication: BREAST CANCER
     Dosage: 2.5 MG
     Route: 048
     Dates: start: 20080424
  3. CORDAREX [Concomitant]
     Route: 048
  4. VERAHEXAL [Concomitant]
     Route: 048
  5. CALCIUM D SANDOZ [Concomitant]
     Route: 048
  6. EUNOVA [Concomitant]
     Route: 048
  7. ALENDRONIC ACID [Concomitant]
  8. PANTOZOL [Concomitant]
     Dosage: 40 MG,
     Route: 048
  9. THYROXIN [Concomitant]
     Dosage: 125 UG,
     Route: 048

REACTIONS (2)
  - ORGANISING PNEUMONIA [None]
  - OSTEOPOROSIS [None]
